FAERS Safety Report 15333338 (Version 1)
Quarter: 2018Q3

REPORT INFORMATION
  Report Type: Spontaneous
  Country: US (occurrence: US)
  Receive Date: 20180824
  Receipt Date: 20180824
  Transmission Date: 20181010
  Serious: Yes (Disabling)
  Sender: FDA-Public Use
  Company Number: None

PATIENT
  Age: 79 Year
  Sex: Male
  Weight: 84.6 kg

DRUGS (17)
  1. AMLODIPINE [Concomitant]
     Active Substance: AMLODIPINE BESYLATE
  2. TESTOSTERONE TRANSDERMAL CREAM COMPOUNDED [Concomitant]
  3. VITAMIN D3 [Concomitant]
     Active Substance: CHOLECALCIFEROL
  4. VITAMIN B12 [Concomitant]
     Active Substance: CYANOCOBALAMIN
  5. VITAMIN C [Concomitant]
     Active Substance: ASCORBIC ACID
  6. CIPRO [Suspect]
     Active Substance: CIPROFLOXACIN HYDROCHLORIDE
     Indication: UPPER RESPIRATORY TRACT INFECTION
     Dosage: ?          QUANTITY:1 TABLET(S);?
     Route: 048
     Dates: start: 19780101, end: 20170101
  7. SIMVASTATIN. [Concomitant]
     Active Substance: SIMVASTATIN
  8. CIPRO [Suspect]
     Active Substance: CIPROFLOXACIN HYDROCHLORIDE
     Indication: URINARY TRACT INFECTION
     Dosage: ?          QUANTITY:1 TABLET(S);?
     Route: 048
     Dates: start: 19780101, end: 20170101
  9. LOSARTAN. [Concomitant]
     Active Substance: LOSARTAN
  10. CLARITIN [Concomitant]
     Active Substance: LORATADINE
  11. SMZ/TMP [Concomitant]
     Active Substance: SULFAMETHOXAZOLE\TRIMETHOPRIM
  12. ASA [Concomitant]
     Active Substance: ASPIRIN
  13. ESZOPICLONE. [Concomitant]
     Active Substance: ESZOPICLONE
  14. ATENOLOL. [Concomitant]
     Active Substance: ATENOLOL
  15. PANTOPRAZOLE [Concomitant]
     Active Substance: PANTOPRAZOLE
  16. MULTIVIT MALE COMBO [Concomitant]
  17. CALCIUM CITRATE [Concomitant]
     Active Substance: CALCIUM CITRATE

REACTIONS (2)
  - Pain in extremity [None]
  - Hypoaesthesia [None]

NARRATIVE: CASE EVENT DATE: 19780101
